FAERS Safety Report 12502114 (Version 2)
Quarter: 2016Q2

REPORT INFORMATION
  Report Type: Spontaneous
  Country: IN (occurrence: IN)
  Receive Date: 20160627
  Receipt Date: 20160628
  Transmission Date: 20160815
  Serious: Yes (Other)
  Sender: FDA-Public Use
  Company Number: IN-ABBVIE-16P-078-1662448-00

PATIENT
  Age: 17 Year
  Sex: Male

DRUGS (2)
  1. VALPARIN CHRONO [Suspect]
     Active Substance: VALPROIC ACID
     Indication: EPILEPSY
     Dosage: EXTENDED RELEASE
     Route: 048
  2. CLONAZEPAM. [Concomitant]
     Active Substance: CLONAZEPAM
     Indication: PRODUCT USED FOR UNKNOWN INDICATION

REACTIONS (5)
  - Type 1 diabetes mellitus [Unknown]
  - Abnormal behaviour [Unknown]
  - Epilepsy [Recovered/Resolved]
  - Hypoglycaemia [Unknown]
  - Weight increased [Unknown]
